FAERS Safety Report 19877257 (Version 1)
Quarter: 2021Q3

REPORT INFORMATION
  Report Type: Spontaneous
  Country: IT (occurrence: IT)
  Receive Date: 20210924
  Receipt Date: 20210924
  Transmission Date: 20211014
  Serious: Yes (Death)
  Sender: FDA-Public Use
  Company Number: IT-009507513-2109ITA003725

PATIENT
  Age: 56 Year
  Sex: Male
  Weight: 70 kg

DRUGS (1)
  1. POSACONAZOLE [Suspect]
     Active Substance: POSACONAZOLE
     Indication: ANTIFUNGAL PROPHYLAXIS
     Dosage: 300 MILLIGRAM, QD
     Route: 048

REACTIONS (3)
  - Hepatic lesion [Fatal]
  - Pulmonary nodular lymphoid hyperplasia [Fatal]
  - Fungal sepsis [Fatal]

NARRATIVE: CASE EVENT DATE: 20210720
